FAERS Safety Report 5887515-4 (Version None)
Quarter: 2008Q3

REPORT INFORMATION
  Report Type: 
  Country: None (occurrence: None)
  Receive Date: 20080918
  Receipt Date: 20080910
  Transmission Date: 20090109
  Serious: Yes (Hospitalization, Other)
  Sender: FDA-Public Use
  Company Number: PHHY2008JP13006

PATIENT
  Sex: Female
  Weight: 35 kg

DRUGS (8)
  1. COMTAN [Suspect]
     Indication: DRUG EFFECT DECREASED
     Dosage: 600 MG, UNK
     Route: 048
     Dates: start: 20080618, end: 20080624
  2. COMTAN [Interacting]
     Dosage: 400 MG, DIVIDED INTO 4 TIMES DAILY
     Route: 048
     Dates: start: 20080625, end: 20080702
  3. EC DOPARL [Interacting]
     Indication: PARKINSON'S DISEASE
     Dosage: 6 TIMES DAILY,500MG
     Route: 048
     Dates: start: 20070309
  4. EC DOPARL [Interacting]
     Dosage: 400MG
     Route: 048
  5. EC DOPARL [Interacting]
     Dosage: 500MG
     Route: 048
  6. FP [Concomitant]
     Indication: PARKINSON'S DISEASE
     Dosage: 7.5MG
     Route: 048
     Dates: start: 20070605
  7. DOPS [Concomitant]
     Indication: PARKINSON'S DISEASE
     Dosage: 100MG
     Route: 048
     Dates: start: 20080527
  8. CARBIDOPA AND LEVODOPA [Concomitant]
     Indication: PARKINSON'S DISEASE
     Route: 048

REACTIONS (9)
  - BLOOD CREATINE PHOSPHOKINASE INCREASED [None]
  - BLOOD LACTATE DEHYDROGENASE INCREASED [None]
  - CONDITION AGGRAVATED [None]
  - DRUG INTERACTION [None]
  - DYSKINESIA [None]
  - HALLUCINATION, AUDITORY [None]
  - HEPATIC FUNCTION ABNORMAL [None]
  - MALAISE [None]
  - NAUSEA [None]
